FAERS Safety Report 7677848-3 (Version None)
Quarter: 2011Q3

REPORT INFORMATION
  Report Type: 
  Country: None (occurrence: None)
  Receive Date: 20110811
  Receipt Date: 20110722
  Transmission Date: 20111222
  Serious: No
  Sender: FDA-Public Use
  Company Number: US-BAYER-2011-053625

PATIENT
  Age: 24 Year
  Sex: Female

DRUGS (5)
  1. INTERFERON BETA-1B [Suspect]
     Dosage: 6 MIU, QOD
     Dates: start: 20110606
  2. INTERFERON BETA-1B [Suspect]
     Dosage: 8 MIU, QOD
     Route: 058
     Dates: start: 20110606
  3. INTERFERON BETA-1B [Suspect]
     Indication: MULTIPLE SCLEROSIS
     Dosage: 2 MIU QOD
     Route: 058
     Dates: start: 20110606
  4. PREDNISONE [Concomitant]
     Dosage: 10 MG, QD
  5. IBUPROFEN [Concomitant]

REACTIONS (7)
  - MIGRAINE [None]
  - INCORRECT ROUTE OF DRUG ADMINISTRATION [None]
  - INJECTION SITE ERYTHEMA [None]
  - INJECTION SITE REACTION [None]
  - INJECTION SITE PAIN [None]
  - MUSCLE SPASMS [None]
  - URINARY INCONTINENCE [None]
